FAERS Safety Report 26146311 (Version 1)
Quarter: 2025Q4

REPORT INFORMATION
  Report Type: Spontaneous
  Country: EU (occurrence: EU)
  Receive Date: 20251211
  Receipt Date: 20251211
  Transmission Date: 20260117
  Serious: Yes (Death)
  Sender: MERCK SHARP & DOHME LLC
  Company Number: None

PATIENT
  Age: 38 Year
  Sex: Male
  Weight: 62.5 kg

DRUGS (3)
  1. KEYTRUDA [Suspect]
     Active Substance: PEMBROLIZUMAB
     Indication: Immunochemotherapy
     Dosage: TIME INTERVAL: CYCLICAL
     Route: 042
     Dates: start: 20251114, end: 20251116
  2. CARBOPLATIN [Suspect]
     Active Substance: CARBOPLATIN
     Indication: Chemotherapy
     Dosage: TIME INTERVAL: CYCLICAL
     Route: 042
     Dates: start: 20251114, end: 20251116
  3. PACLITAXEL [Suspect]
     Active Substance: PACLITAXEL
     Indication: Chemotherapy
     Dosage: TIME INTERVAL: CYCLICAL
     Route: 042
     Dates: start: 20251114, end: 20251116

REACTIONS (3)
  - Tumour lysis syndrome [Fatal]
  - Vomiting [Fatal]
  - Cardio-respiratory arrest [Fatal]

NARRATIVE: CASE EVENT DATE: 20251114
